FAERS Safety Report 12189964 (Version 2)
Quarter: 2016Q4

REPORT INFORMATION
  Report Type: Spontaneous
  Country: US (occurrence: US)
  Receive Date: 20160318
  Receipt Date: 20161030
  Transmission Date: 20170207
  Serious: Yes (Other)
  Sender: FDA-Public Use
  Company Number: US-BEH-2016060016

PATIENT
  Sex: Female

DRUGS (1)
  1. HIZENTRA [Suspect]
     Active Substance: HUMAN IMMUNOGLOBULIN G
     Indication: PRODUCT USED FOR UNKNOWN INDICATION
     Route: 065

REACTIONS (8)
  - Systemic mastocytosis [Unknown]
  - Ankle fracture [Unknown]
  - Ehlers-Danlos syndrome [Unknown]
  - Ill-defined disorder [Unknown]
  - Mast cell activation syndrome [Unknown]
  - Vocal cord disorder [Unknown]
  - Seizure [Unknown]
  - Blood glucose abnormal [Unknown]
